FAERS Safety Report 23851289 (Version 1)
Quarter: 2024Q2

REPORT INFORMATION
  Report Type: Report from Study
  Country: CN (occurrence: CN)
  Receive Date: 20240514
  Receipt Date: 20240514
  Transmission Date: 20240715
  Serious: Yes (Other)
  Sender: FDA-Public Use
  Company Number: CN-SA-2024SA141868

PATIENT
  Age: 73 Year
  Sex: Male

DRUGS (1)
  1. DUPILUMAB [Suspect]
     Active Substance: DUPILUMAB
     Indication: Dermatitis atopic
     Dosage: UNK

REACTIONS (4)
  - Peritoneal tuberculosis [Recovering/Resolving]
  - Abdominal pain [Recovering/Resolving]
  - Ascites [Recovering/Resolving]
  - Pyrexia [Recovering/Resolving]
